FAERS Safety Report 7113090-2 (Version None)
Quarter: 2010Q4

REPORT INFORMATION
  Report Type: 
  Country: None (occurrence: None)
  Receive Date: 20101119
  Receipt Date: 20101110
  Transmission Date: 20110411
  Serious: Yes (Other)
  Sender: FDA-Public Use
  Company Number: US-AMGEN-USASP2010004798

PATIENT

DRUGS (1)
  1. ENBREL [Suspect]
     Indication: PSORIATIC ARTHROPATHY
     Dates: start: 20080425

REACTIONS (10)
  - ASTHENIA [None]
  - ATRIAL FIBRILLATION [None]
  - BACK PAIN [None]
  - FATIGUE [None]
  - HYPOTENSION [None]
  - INTERVERTEBRAL DISC DEGENERATION [None]
  - MIGRAINE WITH AURA [None]
  - MUSCLE SPASMS [None]
  - RED BLOOD CELL COUNT DECREASED [None]
  - WEIGHT DECREASED [None]
